FAERS Safety Report 13122063 (Version 3)
Quarter: 2017Q1

REPORT INFORMATION
  Report Type: Report from Study
  Country: DE (occurrence: DE)
  Receive Date: 20170117
  Receipt Date: 20170317
  Transmission Date: 20170428
  Serious: Yes (Hospitalization)
  Sender: FDA-Public Use
  Company Number: PHHY2017DE005184

PATIENT
  Sex: Female

DRUGS (1)
  1. SANDOSTATIN LAR DEPOT [Suspect]
     Active Substance: OCTREOTIDE ACETATE
     Indication: NEUROENDOCRINE TUMOUR
     Dosage: 30 MG, QMO (EVERY 28 DAYS)
     Route: 030
     Dates: start: 201301, end: 20170310

REACTIONS (6)
  - Circulatory collapse [Unknown]
  - Haemorrhage [Unknown]
  - Renal impairment [Unknown]
  - Red blood cell count decreased [Unknown]
  - Malignant neoplasm progression [Unknown]
  - Blood test abnormal [Unknown]
